FAERS Safety Report 20613615 (Version 3)
Quarter: 2022Q2

REPORT INFORMATION
  Report Type: Spontaneous
  Country: US (occurrence: US)
  Receive Date: 20220319
  Receipt Date: 20220403
  Transmission Date: 20220721
  Serious: Yes (Other)
  Sender: FDA-Public Use
  Company Number: US-MLMSERVICE-20220301-3403337-1

PATIENT
  Age: 26 Year
  Sex: Male
  Weight: 36.3 kg

DRUGS (6)
  1. CARBOPLATIN [Suspect]
     Active Substance: CARBOPLATIN
     Indication: Oesophageal squamous cell carcinoma
     Dosage: UNK UNK, CYCLICAL (3 CYCLE) (AREA UNDER THE CURVE(AUC 1))
     Route: 065
  2. PACLITAXEL [Suspect]
     Active Substance: PACLITAXEL
     Indication: Oesophageal squamous cell carcinoma
     Dosage: 50 MILLIGRAM/SQ. METER, CYCLICAL (2 CYCLE)
     Route: 065
  3. PACLITAXEL [Suspect]
     Active Substance: PACLITAXEL
     Dosage: 25 MILLIGRAM/SQ. METER, CYCLICAL (1 CYCLE)
     Route: 065
  4. NIVOLUMAB [Concomitant]
     Active Substance: NIVOLUMAB
     Indication: Product used for unknown indication
     Dosage: UNK
     Route: 065
  5. LIDOCAINE [Concomitant]
     Active Substance: LIDOCAINE
     Indication: Oesophagitis
     Dosage: UNK
     Route: 065
  6. HYDROCODONE [Concomitant]
     Active Substance: HYDROCODONE
     Indication: Oesophagitis
     Dosage: UNK
     Route: 065

REACTIONS (5)
  - Myalgia [Recovering/Resolving]
  - Vomiting [Recovering/Resolving]
  - Infusion related reaction [Recovering/Resolving]
  - Nausea [Recovering/Resolving]
  - Stomatitis [Recovering/Resolving]
